APPROVED DRUG PRODUCT: DIALYTE CONCENTRATE W/ DEXTROSE 30% IN PLASTIC CONTAINER
Active Ingredient: CALCIUM CHLORIDE; DEXTROSE; MAGNESIUM CHLORIDE; SODIUM ACETATE; SODIUM CHLORIDE
Strength: 510MG/100ML;30GM/100ML;200MG/100ML;9.4GM/100ML;11GM/100ML
Dosage Form/Route: SOLUTION;INTRAPERITONEAL
Application: N018807 | Product #003
Applicant: B BRAUN MEDICAL INC
Approved: Aug 26, 1983 | RLD: No | RS: No | Type: DISCN